FAERS Safety Report 4348947-9 (Version None)
Quarter: 2004Q2

REPORT INFORMATION
  Report Type: 
  Country: None (occurrence: None)
  Receive Date: 20040423
  Receipt Date: 20040414
  Transmission Date: 20050107
  Serious: Yes (Hospitalization)
  Sender: FDA-Public Use
  Company Number: GBWYE705516APR04

PATIENT
  Age: 79 Year
  Sex: Male

DRUGS (12)
  1. ADVIL [Suspect]
     Dosage: 400 MG 3X PER 1 DAY UNKNOWN
     Route: 065
     Dates: start: 20010101, end: 20040311
  2. ATORVASTATIN (ATORVASTATIN,  , 0) [Suspect]
     Indication: HYPERCHOLESTEROLAEMIA
     Dosage: 40 MG 1X PER 1 DAY ORAL
     Route: 048
     Dates: start: 20031101, end: 20040311
  3. AVANDIA [Suspect]
     Indication: DIABETES MELLITUS NON-INSULIN-DEPENDENT
     Dosage: 8 MG 1X PER 1 DAY ORAL
     Route: 048
     Dates: start: 20021001, end: 20040316
  4. METFORMIN (METFORMIN) [Concomitant]
  5. GLICLZIDE (GLICLAZIDE) [Concomitant]
  6. THYROXINE SODIUM (LEVOTHYROXINE SODIUM) [Concomitant]
  7. RAMIPRIL [Concomitant]
  8. OXYBUTYNIN [Concomitant]
  9. CO-CODAMOL (CODEINE PHOSPHATE/PARACETAMOL) [Concomitant]
  10. SILDENAFIL (SILDENAFIL) [Concomitant]
  11. AMOXICILLIN [Concomitant]
  12. DOXYCYCLINE [Concomitant]

REACTIONS (9)
  - ASPARTATE AMINOTRANSFERASE DECREASED [None]
  - ASPARTATE AMINOTRANSFERASE INCREASED [None]
  - BLOOD ALBUMIN INCREASED [None]
  - BLOOD ALKALINE PHOSPHATASE INCREASED [None]
  - BLOOD BILIRUBIN INCREASED [None]
  - CHOLELITHIASIS [None]
  - GAMMA-GLUTAMYLTRANSFERASE INCREASED [None]
  - JAUNDICE [None]
  - LIVER FUNCTION TEST ABNORMAL [None]
